FAERS Safety Report 19325858 (Version 1)
Quarter: 2021Q2

REPORT INFORMATION
  Report Type: Spontaneous
  Country: US (occurrence: US)
  Receive Date: 20210528
  Receipt Date: 20210528
  Transmission Date: 20210717
  Serious: No
  Sender: FDA-Public Use
  Company Number: US-PFIZER INC-2021385543

PATIENT
  Age: 44 Year
  Sex: Female

DRUGS (1)
  1. XELJANZ XR [Suspect]
     Active Substance: TOFACITINIB CITRATE
     Indication: ANKYLOSING SPONDYLITIS
     Dosage: 11 MG, DAILY
     Route: 048
     Dates: start: 202103

REACTIONS (5)
  - Migraine [Unknown]
  - Vomiting [Recovered/Resolved]
  - Off label use [Unknown]
  - Dry eye [Not Recovered/Not Resolved]
  - Dry mouth [Not Recovered/Not Resolved]

NARRATIVE: CASE EVENT DATE: 202103
